FAERS Safety Report 15971292 (Version 1)
Quarter: 2019Q1

REPORT INFORMATION
  Report Type: Spontaneous
  Country: US (occurrence: US)
  Receive Date: 20190215
  Receipt Date: 20190215
  Transmission Date: 20190418
  Serious: Yes (Life-Threatening)
  Sender: FDA-Public Use
  Company Number: PHHY2019US034709

PATIENT
  Age: 59 Year
  Sex: Male

DRUGS (3)
  1. DAUNORUBICIN [Suspect]
     Active Substance: DAUNORUBICIN
     Indication: ACUTE MYELOID LEUKAEMIA
     Dosage: 60 MG/M2, (DAYS 1-3),
     Route: 065
  2. MIDOSTAURIN [Suspect]
     Active Substance: MIDOSTAURIN
     Indication: ACUTE MYELOID LEUKAEMIA
     Dosage: 50 MG, BID ON DAYS 8-21
     Route: 065
  3. CYTARABINE. [Suspect]
     Active Substance: CYTARABINE
     Indication: ACUTE MYELOID LEUKAEMIA
     Dosage: 200 MG/M2, (DAYS 1-7)
     Route: 041

REACTIONS (6)
  - Neutropenic colitis [Unknown]
  - Diarrhoea [Recovered/Resolved]
  - Neutropenia [Unknown]
  - Rash pruritic [Unknown]
  - Abdominal pain [Recovered/Resolved]
  - Pyrexia [Unknown]
